FAERS Safety Report 6307406-4 (Version None)
Quarter: 2009Q3

REPORT INFORMATION
  Report Type: 
  Country: None (occurrence: None)
  Receive Date: 20090813
  Receipt Date: 20070629
  Transmission Date: 20100115
  Serious: Yes (Hospitalization, Other)
  Sender: FDA-Public Use
  Company Number: US-ASTRAZENECA-2006UW22927

PATIENT
  Age: 40 Year
  Sex: Female
  Weight: 121.6 kg

DRUGS (17)
  1. SEROQUEL [Suspect]
     Indication: DEPRESSION
     Dosage: STRENGTH - 100 MG, 200 MG  DOSE- 100 MG - 1000 MG
     Route: 048
     Dates: start: 20000818
  2. SEROQUEL [Suspect]
     Route: 048
     Dates: start: 20010101, end: 20060101
  3. ABILIFY [Concomitant]
  4. RISPERDAL [Concomitant]
     Route: 048
  5. XANAX [Concomitant]
  6. NEXIUM [Concomitant]
     Route: 048
  7. AMBIEN [Concomitant]
     Route: 048
  8. LASIX [Concomitant]
     Route: 048
  9. ZESTRIL [Concomitant]
     Route: 048
  10. REGLAN [Concomitant]
     Route: 048
  11. LIPITOR [Concomitant]
     Route: 048
  12. DOXEPIN HYDROCHLORIDE [Concomitant]
     Dosage: STRENGTH - 50 MG  DOSE- 50 MG - 150 MG
     Route: 048
  13. MOTRIN [Concomitant]
     Route: 048
  14. DOXYCYCLINE HYCLATE [Concomitant]
     Route: 048
  15. DEMEROL [Concomitant]
     Route: 048
  16. CYCLOBENZAPRINE HCL [Concomitant]
  17. EFFEXOR [Concomitant]
     Route: 048

REACTIONS (4)
  - DIABETES MELLITUS [None]
  - DIABETES MELLITUS INADEQUATE CONTROL [None]
  - DIABETIC NEUROPATHY [None]
  - TYPE 2 DIABETES MELLITUS [None]
